FAERS Safety Report 10727441 (Version 2)
Quarter: 2015Q1

REPORT INFORMATION
  Report Type: Spontaneous
  Country: US (occurrence: US)
  Receive Date: 20150121
  Receipt Date: 20150218
  Transmission Date: 20150721
  Serious: No
  Sender: FDA-Public Use
  Company Number: US-EISAI MEDICAL RESEARCH-EC-2015-003062

PATIENT
  Age: 60 Year
  Sex: Female
  Weight: 145 kg

DRUGS (18)
  1. WELLBUTRIN [Concomitant]
     Active Substance: BUPROPION HYDROCHLORIDE
  2. SIMVASTATIN. [Concomitant]
     Active Substance: SIMVASTATIN
  3. WATER PILL [Concomitant]
     Active Substance: UNSPECIFIED INGREDIENT
  4. LOSARTAN [Concomitant]
     Active Substance: LOSARTAN
  5. PROBIOTIC [Concomitant]
     Active Substance: PROBIOTICS NOS
  6. METOPROLOL [Concomitant]
     Active Substance: METOPROLOL
  7. METFORMIN [Concomitant]
     Active Substance: METFORMIN HYDROCHLORIDE
  8. BELVIQ [Suspect]
     Active Substance: LORCASERIN HYDROCHLORIDE
     Indication: WEIGHT DECREASED
     Route: 048
     Dates: start: 20150101, end: 201502
  9. GLIMEPIRIDE. [Concomitant]
     Active Substance: GLIMEPIRIDE
  10. VITAMIN D3 [Concomitant]
     Active Substance: CHOLECALCIFEROL
  11. ESTRACE [Concomitant]
     Active Substance: ESTRADIOL
  12. SYNTHROID [Concomitant]
     Active Substance: LEVOTHYROXINE SODIUM
  13. BELVIQ [Suspect]
     Active Substance: LORCASERIN HYDROCHLORIDE
     Route: 048
     Dates: start: 201502
  14. FIBER [Concomitant]
     Active Substance: PSYLLIUM HUSK
  15. DIOVAN [Concomitant]
     Active Substance: VALSARTAN
  16. AMLODIPINE [Concomitant]
     Active Substance: AMLODIPINE BESYLATE
  17. FLONASE [Concomitant]
     Active Substance: FLUTICASONE PROPIONATE
  18. MVI [Concomitant]
     Active Substance: VITAMINS

REACTIONS (6)
  - Influenza [Not Recovered/Not Resolved]
  - Dry mouth [Not Recovered/Not Resolved]
  - Pain [Recovered/Resolved]
  - Feeling drunk [Recovered/Resolved]
  - Drug dose omission [Not Recovered/Not Resolved]
  - Dizziness [Recovered/Resolved]

NARRATIVE: CASE EVENT DATE: 201501
